FAERS Safety Report 5836951-0 (Version None)
Quarter: 2008Q3

REPORT INFORMATION
  Report Type: 
  Country: None (occurrence: None)
  Receive Date: 20080805
  Receipt Date: 20080725
  Transmission Date: 20090109
  Serious: Yes (Death)
  Sender: FDA-Public Use
  Company Number: 080701-0000527

PATIENT
  Sex: Male

DRUGS (4)
  1. NEOPROFEN [Suspect]
     Indication: PATENT DUCTUS ARTERIOSUS
     Dosage: 9 MG/KG; IV
     Route: 042
     Dates: start: 20080604, end: 20080606
  2. VANCOMYCIN [Concomitant]
  3. GENTAMICIN [Concomitant]
  4. CAFFEINE CITRATE [Concomitant]

REACTIONS (1)
  - NECROTISING ENTEROCOLITIS NEONATAL [None]
